FAERS Safety Report 16806990 (Version 2)
Quarter: 2019Q4

REPORT INFORMATION
  Report Type: Spontaneous
  Country: US (occurrence: US)
  Receive Date: 20190913
  Receipt Date: 20191002
  Transmission Date: 20200122
  Serious: No
  Sender: FDA-Public Use
  Company Number: US-SA-2019SA253006

PATIENT
  Age: 56 Year
  Sex: Female
  Weight: 86.2 kg

DRUGS (18)
  1. ACETAMINOPHEN. [Concomitant]
     Active Substance: ACETAMINOPHEN
     Indication: PREMEDICATION
     Dosage: 650 MG (PRIOR TO INFUSION)
     Route: 048
     Dates: start: 20190321
  2. DIPHENHYDRAMINE HYDROCHLORIDE. [Concomitant]
     Active Substance: DIPHENHYDRAMINE HYDROCHLORIDE
     Indication: ANAPHYLACTIC REACTION
     Dosage: 25 MG, PRN
     Route: 048
     Dates: start: 20190321
  3. TRAMADOL. [Concomitant]
     Active Substance: TRAMADOL
     Dosage: 1 DF, TWO TIMES A DAY AS NEEDED
     Route: 048
     Dates: start: 20181017
  4. CLARITIN-D NOS [Concomitant]
     Active Substance: LORATADINE\PSEUDOEPHEDRINE SULFATE
     Dosage: 1 DF, DAILY AS NEEDED
     Route: 048
     Dates: start: 20171110
  5. FABRAZYME [Suspect]
     Active Substance: AGALSIDASE BETA
     Indication: FABRY^S DISEASE
     Dosage: 0.986 MG/KG, QOW
     Route: 041
     Dates: start: 20170803
  6. ALBUTEROL [SALBUTAMOL] [Concomitant]
     Active Substance: ALBUTEROL
     Dosage: 1 PUFF, Q4H
     Route: 055
     Dates: start: 20181018
  7. MULTIVITAMINS [VITAMINS NOS] [Concomitant]
     Active Substance: VITAMINS
     Dosage: 1 DF, QD
     Route: 048
     Dates: start: 20170802
  8. NORMAL SALINE [Concomitant]
     Active Substance: SODIUM CHLORIDE
     Indication: FLUSHING
     Dosage: 0.9 %
     Route: 042
     Dates: start: 20190321
  9. LAVENDER OIL [Concomitant]
     Active Substance: LAVENDER OIL
     Indication: FEELING OF RELAXATION
     Dosage: 3 GTTS, HS
     Route: 055
     Dates: start: 20190426
  10. STERILE WATER [Concomitant]
     Active Substance: WATER
     Dosage: 1 DF, QD 1 EACH FOR RECONSTITUTION
     Route: 042
     Dates: start: 20190321
  11. ASPIRIN [ACETYLSALICYLIC ACID] [Concomitant]
     Active Substance: ASPIRIN
     Dosage: 1 DF, QD
     Route: 048
     Dates: start: 20190129
  12. MELATONIN [Concomitant]
     Active Substance: MELATONIN
     Dosage: 1 DF, EVERY HOUR AS NEEDED
     Route: 048
     Dates: start: 20171107
  13. COENZYME Q10 [Concomitant]
     Active Substance: UBIDECARENONE
     Dosage: 1 DF, QD
     Route: 048
     Dates: start: 20170802
  14. EPINEPHRINE. [Concomitant]
     Active Substance: EPINEPHRINE
     Indication: ANAPHYLACTIC REACTION
     Dosage: 0.3 MG, PRN
     Route: 030
     Dates: start: 20190321
  15. DULOXETINE [DULOXETINE HYDROCHLORIDE] [Concomitant]
     Active Substance: DULOXETINE HYDROCHLORIDE
     Dosage: 1 DF, BID
     Route: 048
     Dates: start: 20190116
  16. SODIUM CHLORIDE. [Concomitant]
     Active Substance: SODIUM CHLORIDE
     Indication: FLUSHING
     Dosage: 0.9 %
     Route: 042
     Dates: start: 20190321
  17. CALCIUM [Concomitant]
     Active Substance: CALCIUM
     Dosage: 1 DF, QD
     Route: 048
     Dates: start: 20170802
  18. FISH OIL [EICOSAPENTAENOIC ACID] [Concomitant]
     Dosage: 1 DF, QD
     Route: 048
     Dates: start: 20170802

REACTIONS (4)
  - Fatigue [Not Recovered/Not Resolved]
  - Erythema [Not Recovered/Not Resolved]
  - Pruritus [Not Recovered/Not Resolved]
  - Hypertension [Not Recovered/Not Resolved]

NARRATIVE: CASE EVENT DATE: 20190823
